FAERS Safety Report 23629350 (Version 2)
Quarter: 2024Q1

REPORT INFORMATION
  Report Type: Spontaneous
  Country: US (occurrence: US)
  Receive Date: 20240313
  Receipt Date: 20240316
  Transmission Date: 20240409
  Serious: No
  Sender: FDA-Public Use
  Company Number: US-JNJFOC-20240310355

PATIENT
  Age: 79 Year
  Sex: Female
  Weight: 59.9 kg

DRUGS (23)
  1. OPSUMIT [Suspect]
     Active Substance: MACITENTAN
     Indication: Product used for unknown indication
     Route: 048
     Dates: start: 202402, end: 20240223
  2. TYVASO DPI [Suspect]
     Active Substance: TREPROSTINIL
     Indication: Pulmonary hypertension
     Route: 065
     Dates: start: 20231218, end: 20240205
  3. TYVASO DPI [Suspect]
     Active Substance: TREPROSTINIL
     Route: 065
  4. TYVASO DPI [Suspect]
     Active Substance: TREPROSTINIL
     Route: 065
     Dates: start: 20240105, end: 202401
  5. TYVASO DPI [Suspect]
     Active Substance: TREPROSTINIL
     Route: 065
     Dates: start: 202401
  6. TYVASO DPI [Suspect]
     Active Substance: TREPROSTINIL
     Route: 065
  7. ZINC SULFATE [Concomitant]
     Active Substance: ZINC SULFATE
  8. FOLIC ACID [Concomitant]
     Active Substance: FOLIC ACID
  9. MAGNESIUM OXIDE [Concomitant]
     Active Substance: MAGNESIUM OXIDE
  10. PANTOPRAZOLE SODIUM [Concomitant]
     Active Substance: PANTOPRAZOLE SODIUM
  11. PITAVASTATIN CALCIUM [Concomitant]
     Active Substance: PITAVASTATIN CALCIUM
  12. VITAMIN D3 [Concomitant]
     Active Substance: CHOLECALCIFEROL
  13. SERTRALINE HYDROCHLORIDE [Concomitant]
     Active Substance: SERTRALINE HYDROCHLORIDE
  14. TADALAFIL [Concomitant]
     Active Substance: TADALAFIL
  15. B12 ACTIVE [Concomitant]
  16. OXYGEN [Concomitant]
     Active Substance: OXYGEN
  17. POLYETHYLENE GLYCOLS [Concomitant]
     Active Substance: POLYETHYLENE GLYCOLS
  18. GABAPENTIN [Concomitant]
     Active Substance: GABAPENTIN
  19. ACETAMINOPHEN [Concomitant]
     Active Substance: ACETAMINOPHEN
  20. LACTOBACILLUS ACIDOPHILUS [Concomitant]
     Active Substance: LACTOBACILLUS ACIDOPHILUS
  21. B COMPLEX [BIOTIN;CALCIUM PANTOTHENATE;CYANOCOBALAMIN;FOLIC ACID;NICOT [Concomitant]
  22. ASPIRIN [Concomitant]
     Active Substance: ASPIRIN
  23. VALTREX [Concomitant]
     Active Substance: VALACYCLOVIR HYDROCHLORIDE

REACTIONS (5)
  - Abdominal distension [Unknown]
  - Abdominal pain [Unknown]
  - Fluid retention [Unknown]
  - Weight increased [Unknown]
  - Abdominal distension [Unknown]
